FAERS Safety Report 19270797 (Version 5)
Quarter: 2022Q2

REPORT INFORMATION
  Report Type: Report from Study
  Country: PA (occurrence: PA)
  Receive Date: 20210518
  Receipt Date: 20220418
  Transmission Date: 20220721
  Serious: Yes (Hospitalization)
  Sender: FDA-Public Use
  Company Number: PA-002147023-NVSC2021PA094418

PATIENT

DRUGS (3)
  1. RUXOLITINIB [Suspect]
     Active Substance: RUXOLITINIB
     Indication: Bone marrow disorder
     Dosage: 10 MG, BID
     Route: 048
     Dates: start: 20201109, end: 202012
  2. RUXOLITINIB [Suspect]
     Active Substance: RUXOLITINIB
     Indication: Primary myelofibrosis
     Dosage: 10 MG, TID
     Route: 048
     Dates: start: 202011, end: 202012
  3. AMLODIPINE [Concomitant]
     Active Substance: AMLODIPINE BESYLATE
     Indication: Hypertension
     Dosage: 1 OF 5 MG, Q24H (7 YEARS AGO APPROX)
     Route: 065

REACTIONS (20)
  - Gastritis [Unknown]
  - COVID-19 [Unknown]
  - Dizziness [Recovering/Resolving]
  - Cholelithiasis [Not Recovered/Not Resolved]
  - Gait inability [Unknown]
  - Asthenia [Unknown]
  - Decreased appetite [Unknown]
  - Neuralgia [Unknown]
  - Pain [Unknown]
  - Cholecystitis [Unknown]
  - Nausea [Recovered/Resolved]
  - Pallor [Unknown]
  - Inappropriate schedule of product administration [Unknown]
  - Bone marrow disorder [Unknown]
  - Feeling abnormal [Unknown]
  - Platelet count decreased [Unknown]
  - Platelet count increased [Recovering/Resolving]
  - Nausea [Unknown]
  - Thirst [Unknown]
  - Somnolence [Unknown]

NARRATIVE: CASE EVENT DATE: 20220214
